FAERS Safety Report 6929192-7 (Version None)
Quarter: 2010Q3

REPORT INFORMATION
  Report Type: 
  Country: None (occurrence: None)
  Receive Date: 20100817
  Receipt Date: 20100806
  Transmission Date: 20110219
  Serious: Yes (Hospitalization)
  Sender: FDA-Public Use
  Company Number: PL-GENENTECH-305313

PATIENT
  Sex: Male
  Weight: 68.5 kg

DRUGS (17)
  1. RITUXIMAB [Suspect]
     Indication: CHRONIC LYMPHOCYTIC LEUKAEMIA
     Dosage: 895 MG, UNK
     Route: 042
     Dates: start: 20100412
  2. CLADRIBINE [Suspect]
     Indication: CHRONIC LYMPHOCYTIC LEUKAEMIA
     Dosage: 8.22 MG, UNK
     Route: 042
     Dates: start: 20100413
  3. CYCLOPHOSPHAMIDE [Suspect]
     Indication: CHRONIC LYMPHOCYTIC LEUKAEMIA
     Dosage: 447.5 MG, UNK
     Route: 042
     Dates: start: 20100413
  4. ALLOPURINOLUM [Concomitant]
     Indication: PRODUCT USED FOR UNKNOWN INDICATION
     Dosage: UNK
     Dates: start: 20091219, end: 20091228
  5. SULFAMETHOXAZOLE [Concomitant]
     Indication: PRODUCT USED FOR UNKNOWN INDICATION
     Dosage: UNK
     Dates: start: 20091219, end: 20100328
  6. SULFAMETHOXAZOLE [Concomitant]
     Dosage: UNK
     Dates: start: 20100329, end: 20100407
  7. SULFAMETHOXAZOLE [Concomitant]
     Dosage: UNK
     Dates: start: 20100412, end: 20100426
  8. SULFAMETHOXAZOLE [Concomitant]
     Dosage: UNK
     Dates: start: 20100427, end: 20100506
  9. ACYCLOVIR SODIUM [Concomitant]
     Indication: PRODUCT USED FOR UNKNOWN INDICATION
     Dosage: UNK
     Dates: start: 20091219, end: 20100328
  10. ACYCLOVIR SODIUM [Concomitant]
     Dosage: UNK
     Dates: start: 20100329, end: 20100407
  11. ACYCLOVIR SODIUM [Concomitant]
     Dosage: UNK
     Dates: start: 20100412, end: 20100426
  12. ACYCLOVIR SODIUM [Concomitant]
     Dosage: UNK
     Dates: start: 20100427, end: 20100506
  13. NEUPOGEN [Concomitant]
     Indication: PRODUCT USED FOR UNKNOWN INDICATION
     Dosage: UNK
     Dates: start: 20100104, end: 20100110
  14. NEUPOGEN [Concomitant]
     Dosage: UNK
     Dates: start: 20100203, end: 20100209
  15. NEUPOGEN [Concomitant]
     Dosage: UNK
     Dates: start: 20100303, end: 20100309
  16. NEUPOGEN [Concomitant]
     Dosage: UNK
     Dates: start: 20100329, end: 20100404
  17. NEUPOGEN [Concomitant]
     Dosage: UNK
     Dates: start: 20100427, end: 20100503

REACTIONS (1)
  - CHOLECYSTITIS ACUTE [None]
